FAERS Safety Report 12486613 (Version 1)
Quarter: 2016Q2

REPORT INFORMATION
  Report Type: Not Available
  Country: None (occurrence: US)
  Receive Date: 20160621
  Receipt Date: 20160621
  Transmission Date: 20160815
  Serious: No
  Sender: FDA-Public Use
  Company Number: US-AKORN-32959

PATIENT
  Age: 65 Year
  Sex: Female

DRUGS (1)
  1. PROGESTERONE CAPSULES [Suspect]
     Active Substance: PROGESTERONE

REACTIONS (3)
  - Diarrhoea [Unknown]
  - Acetonaemic vomiting [Unknown]
  - Abdominal pain [Unknown]
